FAERS Safety Report 10073672 (Version 1)
Quarter: 2014Q2

REPORT INFORMATION
  Report Type: Spontaneous
  Country: US (occurrence: US)
  Receive Date: 20140411
  Receipt Date: 20140411
  Transmission Date: 20141212
  Serious: Yes (Hospitalization, Other)
  Sender: FDA-Public Use
  Company Number: US-GILEAD-2014-0099417

PATIENT
  Sex: Male

DRUGS (3)
  1. LETAIRIS [Suspect]
     Indication: PRODUCT USED FOR UNKNOWN INDICATION
     Dosage: 10 MG, QD
     Route: 065
     Dates: start: 20110217
  2. RIOCIGUAT [Concomitant]
  3. REMODULIN [Concomitant]

REACTIONS (9)
  - Enteritis infectious [Unknown]
  - Gastritis [Unknown]
  - Headache [Unknown]
  - Vomiting [Unknown]
  - Mobility decreased [Unknown]
  - Dyspnoea [Unknown]
  - Nasal congestion [Unknown]
  - Upper respiratory tract congestion [Unknown]
  - Nausea [Unknown]
